FAERS Safety Report 24173449 (Version 1)
Quarter: 2024Q3

REPORT INFORMATION
  Report Type: Spontaneous
  Country: US (occurrence: US)
  Receive Date: 20240805
  Receipt Date: 20240805
  Transmission Date: 20241017
  Serious: Yes (Hospitalization, Other)
  Sender: NOVO NORDISK
  Company Number: US-NOVOPROD-1262227

PATIENT
  Age: 69 Year
  Sex: Male

DRUGS (3)
  1. OZEMPIC [Suspect]
     Active Substance: SEMAGLUTIDE
     Indication: Product used for unknown indication
     Dosage: 0.5 MG
     Route: 058
     Dates: start: 20240522
  2. NovoFine Plus (32G) [Concomitant]
     Indication: Device therapy
     Dosage: UNK
     Route: 058
  3. XARELTO [Concomitant]
     Active Substance: RIVAROXABAN
     Indication: Deep vein thrombosis
     Dosage: UNK
     Route: 048

REACTIONS (2)
  - Blood pressure abnormal [Recovered/Resolved]
  - Incision site complication [Unknown]

NARRATIVE: CASE EVENT DATE: 20240603
